FAERS Safety Report 11881246 (Version 1)
Quarter: 2015Q4

REPORT INFORMATION
  Report Type: Other
  Country: IR (occurrence: IR)
  Receive Date: 20151231
  Receipt Date: 20151231
  Transmission Date: 20160305
  Serious: Yes (Other)
  Sender: FDA-Public Use
  Company Number: IR-DEXPHARM-20153234

PATIENT
  Age: 3 Year
  Sex: Male

DRUGS (1)
  1. DICLOFENAC INJECTION [Suspect]
     Active Substance: DICLOFENAC

REACTIONS (2)
  - Sciatic nerve palsy [Recovering/Resolving]
  - Hyporeflexia [None]
